FAERS Safety Report 7936266-0 (Version None)
Quarter: 2011Q4

REPORT INFORMATION
  Report Type: 
  Country: None (occurrence: None)
  Receive Date: 20111121
  Receipt Date: 20111109
  Transmission Date: 20120403
  Serious: Yes (Life-Threatening, Hospitalization, Other)
  Sender: FDA-Public Use
  Company Number: 2011MA016308

PATIENT
  Age: 25 Year
  Sex: Male

DRUGS (3)
  1. RANITIDINE [Suspect]
     Indication: TENDONITIS
     Dosage: 75 MG;1X; PO
     Route: 048
  2. METHYLPREDNISOLONE [Suspect]
     Indication: ADVERSE DRUG REACTION
     Dosage: 125 MG;1X IV
     Route: 042
  3. ACECLOFENAC (ACECLOFENAC) [Suspect]
     Indication: TENDONITIS
     Dosage: 100 MG; 1X; PO
     Route: 048

REACTIONS (11)
  - LOSS OF CONSCIOUSNESS [None]
  - RASH [None]
  - PULSE ABSENT [None]
  - HEADACHE [None]
  - RESPIRATORY ARREST [None]
  - DYSPNOEA [None]
  - ERYTHEMA [None]
  - PRURITUS [None]
  - THROAT TIGHTNESS [None]
  - SKIN TEST POSITIVE [None]
  - LOCAL SWELLING [None]
